FAERS Safety Report 9751966 (Version 2)
Quarter: 2013Q4

REPORT INFORMATION
  Report Type: Spontaneous
  Country: FR (occurrence: FR)
  Receive Date: 20131213
  Receipt Date: 20131220
  Transmission Date: 20140711
  Serious: Yes (Death, Hospitalization, Disabling, Other)
  Sender: FDA-Public Use
  Company Number: FR-009507513-1312FRA005471

PATIENT
  Age: 64 Year
  Sex: Male

DRUGS (11)
  1. POLARAMINE [Suspect]
     Indication: LUNG NEOPLASM MALIGNANT
     Dosage: 5 MG, ONCE
     Route: 058
     Dates: start: 20131004, end: 20131004
  2. EMEND [Suspect]
     Indication: LUNG NEOPLASM MALIGNANT
     Dosage: 125 MG, QD
     Route: 048
     Dates: start: 20131004, end: 20131007
  3. CARBOPLATIN [Suspect]
     Indication: LUNG NEOPLASM MALIGNANT
     Dosage: 600 MG, ONCE
     Route: 042
     Dates: start: 20131004, end: 20131004
  4. PACLITAXEL [Suspect]
     Indication: LUNG NEOPLASM MALIGNANT
     Dosage: 300 MG, ONCE
     Route: 042
     Dates: start: 20131004, end: 20131004
  5. KYTRIL [Suspect]
     Indication: LUNG NEOPLASM MALIGNANT
     Dosage: 2 MG, ONCE
     Route: 048
     Dates: start: 20131004, end: 20131004
  6. SOLU-MEDROL [Suspect]
     Indication: LUNG NEOPLASM MALIGNANT
     Dosage: 80 MG, ONCE
     Route: 058
     Dates: start: 20131004, end: 20131004
  7. AZANTAC [Suspect]
     Indication: LUNG NEOPLASM MALIGNANT
     Dosage: 50 MG, ONCE
     Route: 042
     Dates: start: 20131004, end: 20131004
  8. ALDACTONE TABLETS [Concomitant]
     Dosage: 50 MG, QD
     Route: 048
  9. LAROXYL [Concomitant]
     Dosage: 75 MG, QD
     Route: 048
  10. XANAX [Concomitant]
     Dosage: 0.25 MG, TID
     Route: 048
  11. OGAST [Concomitant]
     Dosage: 30 MG, QD
     Route: 048

REACTIONS (2)
  - Cerebrovascular accident [Fatal]
  - Hyponatraemia [Unknown]
